FAERS Safety Report 25318360 (Version 1)
Quarter: 2025Q2

REPORT INFORMATION
  Report Type: Spontaneous
  Country: CH (occurrence: CH)
  Receive Date: 20250515
  Receipt Date: 20250515
  Transmission Date: 20250717
  Serious: Yes (Other)
  Sender: CADILA
  Company Number: CH-CPL-005313

PATIENT
  Age: 82 Year
  Sex: Male

DRUGS (10)
  1. VENLAFAXINE [Suspect]
     Active Substance: VENLAFAXINE HYDROCHLORIDE
     Indication: Depression
  2. BISOPROLOL [Concomitant]
     Active Substance: BISOPROLOL
  3. SACUBITRIL\VALSARTAN [Concomitant]
     Active Substance: SACUBITRIL\VALSARTAN
  4. TORSEMIDE [Concomitant]
     Active Substance: TORSEMIDE
  5. EMPAGLIFLOZIN [Concomitant]
     Active Substance: EMPAGLIFLOZIN
  6. TAMSULOSIN [Concomitant]
     Active Substance: TAMSULOSIN
  7. INSULIN NOS [Concomitant]
     Active Substance: INSULIN NOS
  8. WARFARIN [Concomitant]
     Active Substance: WARFARIN
  9. WARFARIN [Concomitant]
     Active Substance: WARFARIN
  10. VENLAFAXINE [Suspect]
     Active Substance: VENLAFAXINE HYDROCHLORIDE
     Indication: Depression

REACTIONS (6)
  - Cardiac failure [Recovered/Resolved]
  - Electrocardiogram QT prolonged [Recovered/Resolved]
  - Hypertension [Recovering/Resolving]
  - Atrial fibrillation [Recovered/Resolved]
  - Pleural effusion [Unknown]
  - Oedema [Unknown]

NARRATIVE: CASE EVENT DATE: 20230101
